FAERS Safety Report 17424753 (Version 1)
Quarter: 2020Q1

REPORT INFORMATION
  Report Type: Spontaneous
  Country: DE (occurrence: DE)
  Receive Date: 20200217
  Receipt Date: 20200217
  Transmission Date: 20200409
  Serious: Yes (Disabling, Other)
  Sender: FDA-Public Use
  Company Number: DE-TEVA-2020-DE-1186986

PATIENT
  Age: 52 Year
  Sex: Female
  Weight: 58 kg

DRUGS (9)
  1. TAVANIC 500 MG [Suspect]
     Active Substance: LEVOFLOXACIN
     Dosage: 7 DOSAGE FORMS
     Dates: start: 20110831
  2. CIPROBAY (CIPROFLOXACIN) [Suspect]
     Active Substance: CIPROFLOXACIN
     Dosage: 20 DOSAGE FORMS
     Dates: start: 20181210
  3. TAVANIC 500 MG [Suspect]
     Active Substance: LEVOFLOXACIN
     Dosage: 7 DOSAGE FORMS
     Dates: start: 20100218
  4. TAVANIC 500 MG [Suspect]
     Active Substance: LEVOFLOXACIN
     Dosage: 5 DOSAGE FORMS
     Dates: start: 20091105
  5. TAVANIC 500 MG [Suspect]
     Active Substance: LEVOFLOXACIN
     Dosage: 5 DOSAGE FORMS
     Dates: start: 20100622
  6. TAVANIC 500 MG [Suspect]
     Active Substance: LEVOFLOXACIN
     Dosage: 5 DOSAGE FORMS
     Dates: start: 20071221
  7. CIPROFLOXACIN. [Suspect]
     Active Substance: CIPROFLOXACIN
     Indication: SURGERY
     Route: 042
     Dates: start: 20111214
  8. TAVANIC 500 MG [Suspect]
     Active Substance: LEVOFLOXACIN
     Dosage: 5 DOSAGE FORMS
     Dates: start: 20070308
  9. TAVANIC 500 MG [Suspect]
     Active Substance: LEVOFLOXACIN
     Dosage: 5 DOSAGE FORMS
     Dates: start: 20110316

REACTIONS (22)
  - Loss of consciousness [Unknown]
  - Pain in extremity [Not Recovered/Not Resolved]
  - Sensory processing disorder [Unknown]
  - Aphasia [Unknown]
  - Pain [Unknown]
  - Fibromyalgia [Not Recovered/Not Resolved]
  - Haemangioma [Unknown]
  - Mitochondrial enzyme deficiency [Unknown]
  - Spinal pain [Unknown]
  - Fatigue [Unknown]
  - Pain in extremity [Unknown]
  - Dyspepsia [Unknown]
  - Early retirement [Recovered/Resolved with Sequelae]
  - Disturbance in attention [Unknown]
  - Myalgia [Unknown]
  - Connective tissue disorder [Unknown]
  - Arthralgia [Unknown]
  - Cartilage injury [Unknown]
  - Abdominal pain upper [Unknown]
  - Skin burning sensation [Unknown]
  - Pain [Unknown]
  - Memory impairment [Unknown]

NARRATIVE: CASE EVENT DATE: 201609
